FAERS Safety Report 4940641-6 (Version None)
Quarter: 2006Q1

REPORT INFORMATION
  Report Type: 
  Country: None (occurrence: None)
  Receive Date: 20060206
  Receipt Date: 20050216
  Transmission Date: 20060701
  Serious: Yes (Hospitalization)
  Sender: FDA-Public Use
  Company Number: MEDI-0002884

PATIENT
  Age: 50 Year
  Sex: Male
  Weight: 89.8122 kg

DRUGS (4)
  1. ETHYOL [Suspect]
     Indication: TONSIL CANCER
     Dosage: 500 MG, 5 IN 1 WK, SUBCUTANEOUS
     Route: 058
     Dates: start: 20050124, end: 20050209
  2. RADIATION THERAPY [Concomitant]
  3. CARBOPLATIN [Concomitant]
  4. ZYRTEC [Concomitant]

REACTIONS (13)
  - BLISTER [None]
  - MALAISE [None]
  - MOUTH ULCERATION [None]
  - MUCOSAL EROSION [None]
  - OEDEMA [None]
  - PHARYNGOLARYNGEAL PAIN [None]
  - PRURITUS [None]
  - PYREXIA [None]
  - RASH ERYTHEMATOUS [None]
  - RASH MACULAR [None]
  - SKIN BURNING SENSATION [None]
  - SKIN LESION [None]
  - STEVENS-JOHNSON SYNDROME [None]
